FAERS Safety Report 10554994 (Version 2)
Quarter: 2014Q4

REPORT INFORMATION
  Report Type: Spontaneous
  Country: US (occurrence: US)
  Receive Date: 20141030
  Receipt Date: 20141126
  Transmission Date: 20150529
  Serious: Yes (Other)
  Sender: FDA-Public Use
  Company Number: US-BAYER-2014-155886

PATIENT
  Age: 31 Year
  Sex: Female

DRUGS (3)
  1. MORPHINE [Concomitant]
     Active Substance: MORPHINE
     Indication: ABDOMINAL PAIN
  2. PROGESTERONE. [Concomitant]
     Active Substance: PROGESTERONE
  3. MIRENA [Suspect]
     Active Substance: LEVONORGESTREL
     Indication: CONTRACEPTION
     Dosage: 20 MCG/24HR, CONT
     Route: 015
     Dates: start: 20060901, end: 20131125

REACTIONS (4)
  - Placenta accreta [None]
  - Premature delivery [None]
  - Pregnancy with contraceptive device [None]
  - Subchorionic haemorrhage [None]

NARRATIVE: CASE EVENT DATE: 201211
